FAERS Safety Report 18041453 (Version 2)
Quarter: 2020Q3

REPORT INFORMATION
  Report Type: Spontaneous
  Country: US (occurrence: US)
  Receive Date: 20200719
  Receipt Date: 20200819
  Transmission Date: 20201103
  Serious: No
  Sender: FDA-Public Use
  Company Number: US-ASTRAZENECA-2020SE88842

PATIENT
  Age: 26212 Day
  Sex: Female
  Weight: 81.6 kg

DRUGS (1)
  1. BYDUREON BCISE [Suspect]
     Active Substance: EXENATIDE
     Indication: TYPE 2 DIABETES MELLITUS
     Route: 058
     Dates: start: 20200622

REACTIONS (9)
  - Injection site injury [Recovering/Resolving]
  - Device leakage [Recovering/Resolving]
  - Injection site mass [Recovering/Resolving]
  - Injection site pain [Recovering/Resolving]
  - Injection site pruritus [Unknown]
  - Injection site warmth [Recovering/Resolving]
  - Blood glucose increased [Unknown]
  - Injection site bruising [Recovering/Resolving]
  - Incorrect dose administered by product [Unknown]

NARRATIVE: CASE EVENT DATE: 20200630
